FAERS Safety Report 4307614-8 (Version None)
Quarter: 2004Q1

REPORT INFORMATION
  Report Type: 
  Country: None (occurrence: None)
  Receive Date: 20040226
  Receipt Date: 20040212
  Transmission Date: 20041129
  Serious: Yes (Death, Hospitalization)
  Sender: FDA-Public Use
  Company Number: 2004-DE-00747GD (0)

PATIENT
  Age: 63 Year
  Sex: Male

DRUGS (1)
  1. LITHIUM CARBONATE [Suspect]
     Indication: SCHIZOAFFECTIVE DISORDER
     Dosage: 1200 MG

REACTIONS (32)
  - ABASIA [None]
  - ACTIVATED PARTIAL THROMBOPLASTIN TIME PROLONGED [None]
  - ATAXIA [None]
  - BLOOD FIBRINOGEN INCREASED [None]
  - BRAIN OEDEMA [None]
  - CEREBRAL VENOUS THROMBOSIS [None]
  - COMA [None]
  - DEHYDRATION [None]
  - DELIRIUM [None]
  - DEPRESSED LEVEL OF CONSCIOUSNESS [None]
  - DIET REFUSAL [None]
  - DRUG LEVEL ABOVE THERAPEUTIC [None]
  - ELECTROCARDIOGRAM QT PROLONGED [None]
  - ELECTROCARDIOGRAM T WAVE INVERSION [None]
  - FIBRIN D DIMER INCREASED [None]
  - HEART RATE INCREASED [None]
  - HYPERNATRAEMIA [None]
  - HYPERTONIA [None]
  - HYPOSTHENURIA [None]
  - HYPOVOLAEMIA [None]
  - INFARCTION [None]
  - NEPHROGENIC DIABETES INSIPIDUS [None]
  - NERVOUS SYSTEM DISORDER [None]
  - NYSTAGMUS [None]
  - POLYURIA [None]
  - PSYCHOMOTOR AGITATION [None]
  - PUPILS UNEQUAL [None]
  - RESPIRATORY RATE INCREASED [None]
  - SUBARACHNOID HAEMORRHAGE [None]
  - THERAPEUTIC AGENT TOXICITY [None]
  - THROMBOCYTOPENIA [None]
  - TREMOR [None]
